FAERS Safety Report 8593115-8 (Version None)
Quarter: 2012Q3

REPORT INFORMATION
  Report Type: 
  Country: None (occurrence: None)
  Receive Date: 20120814
  Receipt Date: 19910503
  Transmission Date: 20120928
  Serious: Yes (Hospitalization)
  Sender: FDA-Public Use
  Company Number: US-ROCHE-1100734

PATIENT
  Sex: Male

DRUGS (5)
  1. ASCRIPTIN NOS [Concomitant]
  2. ACTIVASE [Suspect]
     Indication: ACUTE MYOCARDIAL INFARCTION
  3. HEPARIN [Concomitant]
  4. NITROGLYCERIN [Concomitant]
  5. HYDROCHLOROTHIAZIDE [Concomitant]
     Route: 048

REACTIONS (1)
  - ANXIETY [None]
